FAERS Safety Report 4586797-9 (Version None)
Quarter: 2005Q1

REPORT INFORMATION
  Report Type: 
  Country: None (occurrence: None)
  Receive Date: 20050217
  Receipt Date: 20050217
  Transmission Date: 20050727
  Serious: Yes (Other)
  Sender: FDA-Public Use
  Company Number: None

PATIENT
  Age: 29 Year
  Sex: Female
  Weight: 72.5755 kg

DRUGS (1)
  1. PROZAC [Suspect]
     Indication: DEPRESSION
     Dosage: 120 MG   ONCE/DAY  ORAL
     Route: 048
     Dates: start: 19960801, end: 19991230

REACTIONS (6)
  - CONFUSIONAL STATE [None]
  - DRUG DEPENDENCE [None]
  - EMOTIONAL DISTRESS [None]
  - HYPOAESTHESIA ORAL [None]
  - NERVOUS SYSTEM DISORDER [None]
  - PARAESTHESIA [None]
